FAERS Safety Report 12173716 (Version 11)
Quarter: 2016Q4

REPORT INFORMATION
  Report Type: Report from Study
  Country: CA (occurrence: CA)
  Receive Date: 20160314
  Receipt Date: 20161018
  Transmission Date: 20170207
  Serious: Yes (Other)
  Sender: FDA-Public Use
  Company Number: CA-ROCHE-1456566

PATIENT
  Age: 75 Year
  Sex: Male
  Weight: 101 kg

DRUGS (18)
  1. ACTEMRA [Suspect]
     Active Substance: TOCILIZUMAB
     Route: 042
     Dates: start: 20141030
  2. ACTONEL [Concomitant]
     Active Substance: RISEDRONATE SODIUM
  3. COZAAR [Concomitant]
     Active Substance: LOSARTAN POTASSIUM
  4. ACTEMRA [Suspect]
     Active Substance: TOCILIZUMAB
     Route: 042
     Dates: start: 20110803
  5. FOLIC ACID. [Concomitant]
     Active Substance: FOLIC ACID
  6. DEMEROL [Suspect]
     Active Substance: MEPERIDINE HYDROCHLORIDE
     Indication: PRODUCT USED FOR UNKNOWN INDICATION
     Route: 065
  7. ATACAND [Concomitant]
     Active Substance: CANDESARTAN CILEXETIL
  8. AVODART [Concomitant]
     Active Substance: DUTASTERIDE
  9. REMICADE [Suspect]
     Active Substance: INFLIXIMAB
     Indication: PRODUCT USED FOR UNKNOWN INDICATION
     Route: 065
  10. HEPTRAL [Concomitant]
     Active Substance: ADEMETIONINE
  11. METHOTREXATE. [Concomitant]
     Active Substance: METHOTREXATE
  12. RITUXAN [Suspect]
     Active Substance: RITUXIMAB
     Indication: PRODUCT USED FOR UNKNOWN INDICATION
     Route: 065
     Dates: start: 1998, end: 200001
  13. DICLOFENAC [Concomitant]
     Active Substance: DICLOFENAC
  14. ACTEMRA [Suspect]
     Active Substance: TOCILIZUMAB
     Indication: RHEUMATOID ARTHRITIS
     Route: 042
     Dates: start: 20100923
  15. ACTEMRA [Suspect]
     Active Substance: TOCILIZUMAB
     Route: 042
     Dates: start: 20160120, end: 20160502
  16. ACTEMRA [Suspect]
     Active Substance: TOCILIZUMAB
     Indication: RHEUMATOID ARTHRITIS
     Route: 058
     Dates: start: 20160817
  17. DEPO-MEDROL [Concomitant]
     Active Substance: METHYLPREDNISOLONE ACETATE
  18. OMEGA 3 [Concomitant]
     Active Substance: OMEGA-3 FATTY ACIDS

REACTIONS (16)
  - Muscle spasms [Not Recovered/Not Resolved]
  - Influenza [Unknown]
  - Blood pressure increased [Unknown]
  - Arthropathy [Not Recovered/Not Resolved]
  - Scrotal abscess [Recovered/Resolved]
  - Infection [Unknown]
  - Pain [Not Recovered/Not Resolved]
  - Arthritis [Unknown]
  - Wound infection [Recovered/Resolved]
  - Arthritis bacterial [Unknown]
  - Infusion related reaction [Unknown]
  - Bronchitis [Not Recovered/Not Resolved]
  - Epididymitis [Recovering/Resolving]
  - Drug hypersensitivity [Unknown]
  - Testicular injury [Recovering/Resolving]
  - Cough [Recovering/Resolving]

NARRATIVE: CASE EVENT DATE: 20141230
